FAERS Safety Report 16261963 (Version 3)
Quarter: 2019Q2

REPORT INFORMATION
  Report Type: Report from Study
  Country: DE (occurrence: DE)
  Receive Date: 20190501
  Receipt Date: 20190527
  Transmission Date: 20190711
  Serious: Yes (Hospitalization)
  Sender: FDA-Public Use
  Company Number: DE-INCYTE CORPORATION-2018IN012196

PATIENT

DRUGS (13)
  1. ETORICOXIB. [Concomitant]
     Active Substance: ETORICOXIB
     Indication: OSTEOARTHRITIS
     Dosage: 90 MG, QD
     Route: 065
  2. L-THYROXINE [Concomitant]
     Active Substance: LEVOTHYROXINE
     Indication: HYPOTHYROIDISM
     Dosage: 75 MG, QD
     Route: 065
     Dates: start: 20030701
  3. ACETYLSALICYLIC ACID [Concomitant]
     Active Substance: ASPIRIN
     Indication: PROPHYLAXIS
     Dosage: 100 MG, QD
     Route: 065
  4. CABERGOLINE. [Concomitant]
     Active Substance: CABERGOLINE
     Indication: NEURALGIA
     Dosage: 0.5 MG, Q2W
     Route: 065
  5. DILTIAZEM. [Concomitant]
     Active Substance: DILTIAZEM
     Indication: HYPERTENSION
     Dosage: 120 MG, BID (2X120MG)
     Route: 065
  6. HYDROCORTISONE. [Concomitant]
     Active Substance: HYDROCORTISONE
     Dosage: 30 MG, QD
     Route: 065
     Dates: start: 20190305
  7. PANTOPRAZOLE [Concomitant]
     Active Substance: PANTOPRAZOLE
     Indication: PROPHYLAXIS
     Dosage: 40 MG, QD
     Route: 065
  8. CABERGOLINE. [Concomitant]
     Active Substance: CABERGOLINE
     Dosage: 0.5 MG, QW (0.5 MG EVERY 14 DAYS, SINCE 28 DEC 2017 0.5 MG PER WEEK )
     Route: 065
     Dates: start: 201712
  9. ACICLOSTAD [Concomitant]
     Indication: NEURALGIA
     Dosage: 800 MG, QD
     Route: 065
     Dates: start: 20150629, end: 20161024
  10. INCB018424 [Suspect]
     Active Substance: RUXOLITINIB
     Indication: PRIMARY MYELOFIBROSIS
     Dosage: 20 MG, QD
     Route: 048
     Dates: start: 20160420
  11. LISINOPRIL. [Concomitant]
     Active Substance: LISINOPRIL
     Indication: HYPERTENSION
     Dosage: 20 MG, QD
     Route: 065
  12. THOMAPYRIN [Concomitant]
     Indication: NEURALGIA
     Dosage: 250 MG, QD
     Route: 065
     Dates: start: 20160919
  13. HYDROCORTISONE. [Concomitant]
     Active Substance: HYDROCORTISONE
     Indication: BLOOD CORTICOTROPHIN DECREASED
     Dosage: 40 MG, QD
     Route: 065
     Dates: start: 201004, end: 20190304

REACTIONS (4)
  - Rectal haemorrhage [Recovered/Resolved]
  - Anal ulcer [Recovered/Resolved]
  - Rectal haemorrhage [Recovered/Resolved]
  - Anal ulcer [Recovered/Resolved]

NARRATIVE: CASE EVENT DATE: 20181026
